FAERS Safety Report 17979671 (Version 1)
Quarter: 2020Q3

REPORT INFORMATION
  Report Type: Report from Study
  Country: ES (occurrence: ES)
  Receive Date: 20200703
  Receipt Date: 20200703
  Transmission Date: 20201103
  Serious: Yes (Other)
  Sender: FDA-Public Use
  Company Number: ES-JNJFOC-20200636250

PATIENT

DRUGS (2)
  1. DARUNAVIR [Suspect]
     Active Substance: DARUNAVIR
     Indication: HIV INFECTION
     Route: 048
  2. RITONAVIR. [Suspect]
     Active Substance: RITONAVIR
     Indication: HIV INFECTION
     Route: 065

REACTIONS (10)
  - Hepatotoxicity [Unknown]
  - Arthralgia [Unknown]
  - Neurotoxicity [Unknown]
  - Immunodeficiency [Unknown]
  - Dyslipidaemia [Unknown]
  - Therapy non-responder [Unknown]
  - Osteoporosis [Unknown]
  - Nephropathy toxic [Unknown]
  - Gastrointestinal toxicity [Unknown]
  - Drug interaction [Unknown]
